FAERS Safety Report 9238530 (Version 1)
Quarter: 2013Q2

REPORT INFORMATION
  Report Type: Spontaneous
  Country: US (occurrence: US)
  Receive Date: 20130418
  Receipt Date: 20130418
  Transmission Date: 20140414
  Serious: Yes (Other)
  Sender: FDA-Public Use
  Company Number: US-BRISTOL-MYERS SQUIBB COMPANY-18697367

PATIENT
  Age: 77 Year
  Sex: Male

DRUGS (3)
  1. BYDUREON 2MG SUSPENSION [Suspect]
     Indication: TYPE 2 DIABETES MELLITUS
     Dates: start: 20120613
  2. GLYBURIDE + METFORMIN HCL [Concomitant]
     Dosage: 1DF = 2.5/1000
  3. JANUVIA [Concomitant]
     Dosage: 1DF = 100

REACTIONS (1)
  - Embolic stroke [Recovering/Resolving]
